FAERS Safety Report 21421544 (Version 1)
Quarter: 2022Q4

REPORT INFORMATION
  Report Type: Spontaneous
  Country: GB (occurrence: GB)
  Receive Date: 20221007
  Receipt Date: 20221007
  Transmission Date: 20230113
  Serious: Yes (Other)
  Sender: FDA-Public Use
  Company Number: None

PATIENT
  Sex: Female
  Weight: 155 kg

DRUGS (4)
  1. HALDOL [Suspect]
     Active Substance: HALOPERIDOL
     Indication: Product used for unknown indication
     Route: 065
  2. ARIPIPRAZOLE [Concomitant]
     Active Substance: ARIPIPRAZOLE
     Indication: Product used for unknown indication
     Route: 065
     Dates: start: 2019
  3. SERTRALINE [Concomitant]
     Active Substance: SERTRALINE HYDROCHLORIDE
     Indication: Product used for unknown indication
     Route: 065
     Dates: start: 201802
  4. LORAZEPAM [Concomitant]
     Active Substance: LORAZEPAM
     Indication: Product used for unknown indication
     Route: 065
     Dates: start: 202101

REACTIONS (16)
  - Dependence [Unknown]
  - Hallucination, auditory [Unknown]
  - Confusional state [Unknown]
  - Dyskinesia [Unknown]
  - Memory impairment [Unknown]
  - Blunted affect [Unknown]
  - Anxiety [Unknown]
  - Agitation [Unknown]
  - Psychotic disorder [Unknown]
  - Irritability [Unknown]
  - Hostility [Unknown]
  - Restlessness [Unknown]
  - Sleep disorder [Unknown]
  - Muscle spasms [Unknown]
  - Weight increased [Unknown]
  - Dyskinesia [Unknown]
